FAERS Safety Report 15320369 (Version 2)
Quarter: 2018Q3

REPORT INFORMATION
  Report Type: Report from Study
  Country: US (occurrence: US)
  Receive Date: 20180827
  Receipt Date: 20180924
  Transmission Date: 20181010
  Serious: Yes (Other)
  Sender: FDA-Public Use
  Company Number: US-BAYER-2018-141191

PATIENT
  Sex: Male
  Weight: 78.91 kg

DRUGS (7)
  1. ADEMPAS [Suspect]
     Active Substance: RIOCIGUAT
     Indication: PULMONARY ARTERIAL HYPERTENSION
     Dosage: UNK
     Dates: start: 20170725
  2. APIXABAN [Concomitant]
     Active Substance: APIXABAN
     Dosage: UNK
  3. OPSUMIT [Suspect]
     Active Substance: MACITENTAN
     Dosage: UNK
  4. ADEMPAS [Suspect]
     Active Substance: RIOCIGUAT
     Indication: PULMONARY ARTERIAL HYPERTENSION
     Dosage: 2.5 MG, TID
     Route: 048
  5. UPTRAVI [Suspect]
     Active Substance: SELEXIPAG
     Dosage: 400 ?G, BID
  6. ADEMPAS [Suspect]
     Active Substance: RIOCIGUAT
     Indication: PULMONARY ARTERIAL HYPERTENSION
     Dosage: 2.5 MG, TID
     Route: 048
  7. UPTRAVI [Suspect]
     Active Substance: SELEXIPAG
     Dosage: 600 ?G, BID

REACTIONS (10)
  - Pain [Unknown]
  - Musculoskeletal pain [Unknown]
  - Nasal congestion [Not Recovered/Not Resolved]
  - Dyspnoea [None]
  - Headache [Not Recovered/Not Resolved]
  - Sinus disorder [Not Recovered/Not Resolved]
  - Procedural pain [Recovered/Resolved]
  - Surgery [Recovered/Resolved]
  - Myalgia [Not Recovered/Not Resolved]
  - Pain in jaw [Unknown]
